FAERS Safety Report 14106048 (Version 2)
Quarter: 2017Q4

REPORT INFORMATION
  Report Type: Report from Study
  Country: US (occurrence: US)
  Receive Date: 20171019
  Receipt Date: 20171130
  Transmission Date: 20180321
  Serious: No
  Sender: FDA-Public Use
  Company Number: US-009507513-1710USA001564

PATIENT
  Age: 80 Year
  Sex: Female

DRUGS (1)
  1. ASMANEX [Suspect]
     Active Substance: MOMETASONE FUROATE
     Indication: ASTHMA
     Dosage: ONE INHALATION IN AM
     Route: 055

REACTIONS (4)
  - Cough [Recovering/Resolving]
  - Product quality issue [Unknown]
  - Inappropriate schedule of drug administration [Unknown]
  - Product container issue [Unknown]

NARRATIVE: CASE EVENT DATE: 20171001
